FAERS Safety Report 8912630 (Version 1)
Quarter: 2012Q4

REPORT INFORMATION
  Report Type: 
  Country: CN (occurrence: CN)
  Receive Date: 20121116
  Receipt Date: 20121116
  Transmission Date: 20130627
  Serious: Yes (Other)
  Sender: FDA-Public Use
  Company Number: CN-ROCHE-1155454

PATIENT

DRUGS (4)
  1. RITUXIMAB [Suspect]
     Indication: B-CELL LYMPHOMA
     Dosage: day 1
     Route: 042
  2. GEMCITABINE [Suspect]
     Indication: B-CELL LYMPHOMA
     Dosage: day 1 and 8
     Route: 042
  3. DEXAMETHASONE [Suspect]
     Indication: B-CELL LYMPHOMA
     Dosage: day 1, 4
     Route: 042
  4. CISPLATIN [Suspect]
     Indication: B-CELL LYMPHOMA
     Dosage: day 1-3
     Route: 042

REACTIONS (10)
  - Neutropenia [Unknown]
  - Anaemia [Unknown]
  - Thrombocytopenia [Unknown]
  - Febrile neutropenia [Unknown]
  - Nausea [Unknown]
  - Diarrhoea [Unknown]
  - Constipation [Unknown]
  - Hepatic enzyme increased [Unknown]
  - Blood creatinine increased [Unknown]
  - Infusion related reaction [Unknown]
